FAERS Safety Report 9646425 (Version 2)
Quarter: 2013Q4

REPORT INFORMATION
  Report Type: Report from Study
  Country: US (occurrence: US)
  Receive Date: 20131025
  Receipt Date: 20131025
  Transmission Date: 20140711
  Serious: Yes (Hospitalization)
  Sender: FDA-Public Use
  Company Number: US-ABBVIE-13P-163-1139355-00

PATIENT
  Age: 44 Year
  Sex: Female
  Weight: 69.01 kg

DRUGS (7)
  1. HUMIRA [Suspect]
     Indication: CROHN^S DISEASE
     Dates: start: 20130101
  2. ZOLOFT [Concomitant]
     Indication: DEPRESSION
  3. CLARITIN [Concomitant]
     Indication: SEASONAL ALLERGY
  4. MELATONIN [Concomitant]
     Indication: INSOMNIA
  5. IBUPROFEN [Concomitant]
     Indication: PAIN
  6. MULTIVITAMIN [Concomitant]
     Indication: VITAMIN SUPPLEMENTATION
  7. NICOTINE PATCH [Concomitant]
     Indication: EX-TOBACCO USER
     Dates: start: 201306

REACTIONS (6)
  - Ileal stenosis [Recovered/Resolved]
  - Intestinal obstruction [Recovered/Resolved]
  - Intestinal mucosal hypertrophy [Recovered/Resolved]
  - Enteritis [Recovered/Resolved]
  - Ileal stenosis [Recovered/Resolved]
  - Abdominal pain [Recovered/Resolved]
